FAERS Safety Report 5200383-9 (Version None)
Quarter: 2006Q4

REPORT INFORMATION
  Report Type: 
  Country: None (occurrence: None)
  Receive Date: 20061016
  Receipt Date: 20060718
  Transmission Date: 20070319
  Serious: No
  Sender: FDA-Public Use
  Company Number: 2006SP002732

PATIENT
  Age: 54 Year
  Sex: Female
  Weight: 70.3075 kg

DRUGS (12)
  1. LUNESTA [Suspect]
     Indication: INSOMNIA
     Dosage: 3 MG; ORAL
     Route: 048
     Dates: start: 20060101
  2. AMLODIPINE [Concomitant]
  3. DIGITEK [Concomitant]
  4. TEGRETOL [Concomitant]
  5. SYNTHROUID [Concomitant]
  6. KLONOPIN [Concomitant]
  7. METFORMIN HCL [Concomitant]
  8. POTASSIUM ACETATE [Concomitant]
  9. CLONIDINE [Concomitant]
  10. NADOLOL [Concomitant]
  11. HYDROCHLOROTHIAZIDE [Concomitant]
  12. ESTROGENS CONJUGTED [Concomitant]

REACTIONS (1)
  - MIDDLE INSOMNIA [None]
